FAERS Safety Report 6425215-2 (Version None)
Quarter: 2009Q4

REPORT INFORMATION
  Report Type: 
  Country: None (occurrence: None)
  Receive Date: 20091030
  Receipt Date: 20091030
  Transmission Date: 20100525
  Serious: No
  Sender: FDA-Public Use
  Company Number: None

PATIENT
  Sex: Male
  Weight: 76.2043 kg

DRUGS (1)
  1. SPIRONOLACTONE [Suspect]
     Dosage: 25 MG TAB - 1 TAB DAILY

REACTIONS (10)
  - ASTHENIA [None]
  - DIZZINESS [None]
  - DYSPNOEA [None]
  - FATIGUE [None]
  - GYNAECOMASTIA [None]
  - HOT FLUSH [None]
  - HYPOTENSION [None]
  - INSOMNIA [None]
  - SOMNOLENCE [None]
  - THIRST [None]
